FAERS Safety Report 7007392-8 (Version None)
Quarter: 2010Q3

REPORT INFORMATION
  Report Type: 
  Country: None (occurrence: None)
  Receive Date: 20100922
  Receipt Date: 20100910
  Transmission Date: 20110219
  Serious: Yes (Hospitalization, Other)
  Sender: FDA-Public Use
  Company Number: JP-PFIZER INC-2010097030

PATIENT
  Age: 86 Year
  Sex: Male
  Weight: 59.1 kg

DRUGS (6)
  1. LYRICA [Suspect]
     Indication: POST HERPETIC NEURALGIA
     Dosage: 75 MG, 2X/DAY
     Route: 048
     Dates: start: 20100630, end: 20100706
  2. LYRICA [Suspect]
     Dosage: 150 MG, 2X/DAY
     Route: 048
     Dates: start: 20100707, end: 20100729
  3. LIPITOR [Concomitant]
     Indication: HYPERLIPIDAEMIA
     Dosage: 5 MG, 1X/DAY
     Route: 048
  4. FAMOTIDINE [Concomitant]
     Dosage: 20 MG, 1X/DAY
  5. BUFERIN [Concomitant]
     Dosage: 81 MG, 1X/DAY
     Route: 048
  6. SOLANAX [Concomitant]
     Indication: INSOMNIA
     Dosage: 0.4 MG, 1X/DAY
     Route: 048
     Dates: start: 20100521

REACTIONS (6)
  - BLOOD DISORDER [None]
  - HAEMATOCRIT DECREASED [None]
  - HAEMOGLOBIN DECREASED [None]
  - OEDEMA PERIPHERAL [None]
  - PLATELET COUNT DECREASED [None]
  - RENAL DISORDER [None]
